FAERS Safety Report 7571720-5 (Version None)
Quarter: 2011Q2

REPORT INFORMATION
  Report Type: 
  Country: None (occurrence: None)
  Receive Date: 20110624
  Receipt Date: 20110405
  Transmission Date: 20111010
  Serious: Yes (Hospitalization)
  Sender: FDA-Public Use
  Company Number: AT-CEPHALON-2011003288

PATIENT
  Sex: Male
  Weight: 76 kg

DRUGS (2)
  1. RITUXIMAB [Suspect]
     Route: 042
     Dates: start: 20110224, end: 20110323
  2. BENDAMUSTINE HCL [Suspect]
     Route: 042
     Dates: start: 20110225, end: 20110324

REACTIONS (4)
  - NEUTROPENIA [None]
  - ENDOCARDITIS [None]
  - SYNOVIAL RUPTURE [None]
  - SUPERINFECTION [None]
